FAERS Safety Report 10142615 (Version 2)
Quarter: 2014Q2

REPORT INFORMATION
  Report Type: Report from Study
  Country: CL (occurrence: CL)
  Receive Date: 20140430
  Receipt Date: 20140430
  Transmission Date: 20141212
  Serious: Yes (Other)
  Sender: FDA-Public Use
  Company Number: CL-ROCHE-1352910

PATIENT
  Age: 49 Year
  Sex: Female
  Weight: 68 kg

DRUGS (2)
  1. XELODA [Suspect]
     Indication: BREAST CANCER
     Dosage: 14 DAYS PER CYCLE
     Route: 048
     Dates: start: 20131104, end: 20140410
  2. METHADONE [Concomitant]
     Indication: BACK PAIN
     Route: 065
     Dates: start: 201305

REACTIONS (2)
  - Bone pain [Not Recovered/Not Resolved]
  - Skeletal injury [Not Recovered/Not Resolved]
